FAERS Safety Report 4955830-4 (Version None)
Quarter: 2006Q1

REPORT INFORMATION
  Report Type: 
  Country: None (occurrence: None)
  Receive Date: 20060323
  Receipt Date: 20060308
  Transmission Date: 20060701
  Serious: No
  Sender: FDA-Public Use
  Company Number: 2006-139532-NL

PATIENT
  Age: 68 Year
  Sex: Female

DRUGS (10)
  1. DANAPAROID SODIUM [Suspect]
     Indication: DISSEMINATED INTRAVASCULAR COAGULATION
     Dosage: 1250 ANTI_XA BID INTRAVENOUS (NOS)
     Route: 042
     Dates: start: 20060227, end: 20060302
  2. GABEXATE MESILATE [Concomitant]
  3. ANTITHROMBIN III [Concomitant]
  4. DOPAMINE HCL [Concomitant]
  5. CARBENIN [Concomitant]
  6. CLINDAMYCIN PHOSPHATE [Concomitant]
  7. ACYCLOVIR [Concomitant]
  8. INSULIN HUMAN [Concomitant]
  9. PRODIF [Concomitant]
  10. PREDNISOLONE ACETATE OPHTHALMIC SUSPENSION/DROPS [Concomitant]

REACTIONS (1)
  - DEEP VEIN THROMBOSIS [None]
